FAERS Safety Report 6187335-X (Version None)
Quarter: 2009Q2

REPORT INFORMATION
  Report Type: 
  Country: None (occurrence: None)
  Receive Date: 20090512
  Receipt Date: 20090504
  Transmission Date: 20091009
  Serious: Yes (Hospitalization, Congenital Anomaly)
  Sender: FDA-Public Use
  Company Number: A0661741A

PATIENT
  Sex: Male

DRUGS (18)
  1. PAXIL [Suspect]
     Indication: DEPRESSION
     Dates: start: 19990101
  2. ASPIRIN [Concomitant]
     Dosage: 81MG PER DAY
     Dates: start: 20020101
  3. VALTREX [Concomitant]
     Dates: start: 20010901
  4. CEPHALEXIN [Concomitant]
     Dates: start: 20010901
  5. GLUCOPHAGE [Concomitant]
     Dosage: 500MG AS REQUIRED
     Dates: start: 20011001
  6. HUMALOG [Concomitant]
     Dates: start: 20011001, end: 20021201
  7. HUMULIN U [Concomitant]
     Dates: start: 20011201, end: 20020501
  8. ZITHROMAX [Concomitant]
     Dates: start: 20011201
  9. GUIAFENESIN-DM [Concomitant]
     Dates: start: 20011201
  10. RHINOCORT [Concomitant]
     Dates: start: 20011201
  11. RESPAIRE [Concomitant]
     Dates: start: 20011201
  12. CELEXA [Concomitant]
     Indication: DEPRESSION
  13. SERZONE [Concomitant]
     Indication: DEPRESSION
  14. EFFEXOR [Concomitant]
     Indication: DEPRESSION
  15. MULTIVITAMIN WITH IRON [Concomitant]
  16. LESCOL [Concomitant]
  17. ULTRALENTE [Concomitant]
  18. LANTUS [Concomitant]

REACTIONS (22)
  - ATRIAL SEPTAL DEFECT [None]
  - CARDIAC MURMUR [None]
  - CHEST PAIN [None]
  - CLUBBING [None]
  - CONGENITAL ANOMALY [None]
  - CYANOSIS [None]
  - DEVELOPMENTAL DELAY [None]
  - DOUBLE OUTLET RIGHT VENTRICLE [None]
  - DRUG EXPOSURE DURING PREGNANCY [None]
  - DYSPNOEA [None]
  - FAILURE TO THRIVE [None]
  - FATIGUE [None]
  - HYPERDYNAMIC LEFT VENTRICLE [None]
  - HYPOXIA [None]
  - LACTESCENT SERUM [None]
  - OXYGEN SATURATION DECREASED [None]
  - PLEURAL EFFUSION [None]
  - PSYCHOMOTOR SKILLS IMPAIRED [None]
  - PULMONARY OEDEMA [None]
  - TOOTH DISORDER [None]
  - VENTRICULAR SEPTAL DEFECT [None]
  - WEIGHT GAIN POOR [None]
